FAERS Safety Report 8157990-3 (Version None)
Quarter: 2012Q1

REPORT INFORMATION
  Report Type: 
  Country: None (occurrence: None)
  Receive Date: 20120222
  Receipt Date: 20120216
  Transmission Date: 20120608
  Serious: Yes (Hospitalization, Other)
  Sender: FDA-Public Use
  Company Number: PHHY2012FR014729

PATIENT
  Age: 77 Year
  Sex: Female

DRUGS (8)
  1. ZOLEDRONOC ACID [Suspect]
     Route: 042
     Dates: start: 20101201
  2. BISOPROLOL [Concomitant]
  3. AMIODARONE HCL [Concomitant]
  4. CRESTOR [Concomitant]
  5. FIXICAL [Concomitant]
  6. PREVISCAN [Concomitant]
     Dates: start: 20030101
  7. URBANYL [Concomitant]
     Dosage: UNK
  8. DILTIAZEM HCL [Concomitant]

REACTIONS (2)
  - EPILEPSY [None]
  - FALL [None]
